FAERS Safety Report 6750787-8 (Version None)
Quarter: 2010Q2

REPORT INFORMATION
  Report Type: 
  Country: None (occurrence: None)
  Receive Date: 20100602
  Receipt Date: 20100525
  Transmission Date: 20101027
  Serious: Yes (Hospitalization, Other)
  Sender: FDA-Public Use
  Company Number: JP-SHIRE-SPV1-2009-02553

PATIENT

DRUGS (19)
  1. LANTHANUM CARBONATE [Suspect]
     Indication: HYPERPHOSPHATAEMIA
     Dosage: 1500 MG, UNK
     Route: 048
     Dates: start: 20090803
  2. LANTHANUM CARBONATE [Suspect]
     Dosage: 750 MG, UNK
     Route: 048
     Dates: start: 20090420, end: 20090802
  3. RENAGEL                            /01459901/ [Concomitant]
     Indication: HYPERPHOSPHATAEMIA
     Dosage: 3000 MG, UNK
     Route: 048
     Dates: end: 20090517
  4. RENAGEL                            /01459901/ [Concomitant]
     Dosage: 1500 MG, UNK
     Dates: start: 20090518, end: 20090531
  5. RENAGEL                            /01459901/ [Concomitant]
     Dosage: 1500 MG, UNK
     Route: 048
     Dates: start: 20090914
  6. CALCIUM CARBONATE [Concomitant]
     Indication: HYPERPHOSPHATAEMIA
     Dosage: 3000 MG, UNK
     Dates: end: 20090816
  7. CALCIUM CARBONATE [Concomitant]
     Dosage: 4500 MG, UNK
     Route: 048
     Dates: start: 20090817
  8. ONEALFA [Concomitant]
     Dosage: .25 UG, UNK
     Route: 048
     Dates: start: 20090623, end: 20091105
  9. RENIVEZE [Concomitant]
     Dosage: 2.5 MG, UNK
     Route: 048
  10. ASPIRIN [Concomitant]
     Dosage: 100 MG, UNK
     Route: 048
  11. PLAVIX [Concomitant]
     Dosage: 75 MG, UNK
     Route: 048
  12. SELOKEN                            /00376902/ [Concomitant]
     Dosage: 40 MG, UNK
     Route: 048
  13. DIART [Concomitant]
     Dosage: 60 MG, UNK
     Route: 048
  14. ADALAT CC [Concomitant]
     Dosage: 40 MG, UNK
     Route: 048
  15. PROTECADIN [Concomitant]
     Dosage: 10 MG, UNK
     Route: 048
  16. EPOGIN [Concomitant]
     Dosage: 750 IU, UNK
     Route: 042
  17. ALFAROL [Concomitant]
     Dosage: .5 G, UNKNOWN
     Route: 048
     Dates: start: 20091106, end: 20100122
  18. OXAROL [Concomitant]
     Dosage: 2.5 UG, UNKNOWN
     Route: 042
     Dates: start: 20100122, end: 20100305
  19. OXAROL [Concomitant]
     Dosage: 10 UG, UNKNOWN
     Route: 042
     Dates: start: 20100305

REACTIONS (2)
  - HYPOCALCAEMIA [None]
  - SHUNT MALFUNCTION [None]
